FAERS Safety Report 17147348 (Version 1)
Quarter: 2019Q4

REPORT INFORMATION
  Report Type: Report from Study
  Country: CA (occurrence: CA)
  Receive Date: 20191212
  Receipt Date: 20191212
  Transmission Date: 20200122
  Serious: Yes (Hospitalization, Other)
  Sender: FDA-Public Use
  Company Number: CA-ROCHE-2332955

PATIENT
  Age: 25 Year
  Sex: Male
  Weight: 97 kg

DRUGS (13)
  1. ERTAPENEM. [Concomitant]
     Active Substance: ERTAPENEM SODIUM
  2. RITUXAN [Suspect]
     Active Substance: RITUXIMAB
     Indication: VASCULITIS
     Route: 042
     Dates: start: 20190612
  3. XYLOCAINE [Concomitant]
     Active Substance: LIDOCAINE HYDROCHLORIDE
  4. VITAMIN D3 [Concomitant]
     Active Substance: CHOLECALCIFEROL
     Dosage: 1000 UNITS
     Route: 048
  5. BENADRYL [Concomitant]
     Active Substance: DIPHENHYDRAMINE HYDROCHLORIDE
     Indication: PREMEDICATION
     Route: 048
     Dates: start: 20190612
  6. SOLU-MEDROL [Concomitant]
     Active Substance: METHYLPREDNISOLONE SODIUM SUCCINATE
     Indication: PREMEDICATION
     Route: 042
     Dates: start: 20190612
  7. RITUXAN [Suspect]
     Active Substance: RITUXIMAB
     Indication: VASCULITIS
  8. EPINEPHRINE. [Concomitant]
     Active Substance: EPINEPHRINE
  9. TYLENOL WITH CODEINE [Concomitant]
     Active Substance: ACETAMINOPHEN\CODEINE PHOSPHATE
     Dosage: 1-2 TABLET
     Route: 048
  10. RITUXAN [Suspect]
     Active Substance: RITUXIMAB
     Indication: RHEUMATOID ARTHRITIS
     Dosage: LAST DOSE RECEIVED ON 30/JUN/2009 PATIENT WAS IN RITAZAREM TRIAL PREVIOUSLY
     Route: 065
     Dates: start: 20090609
  11. TYLENOL [Concomitant]
     Active Substance: ACETAMINOPHEN
     Indication: PREMEDICATION
     Route: 048
     Dates: start: 20190612
  12. DOXYCYCLINE. [Concomitant]
     Active Substance: DOXYCYCLINE
     Route: 048
  13. CALCIUM CARBONATE. [Concomitant]
     Active Substance: CALCIUM CARBONATE
     Route: 048

REACTIONS (34)
  - Fatigue [Unknown]
  - Red blood cell count increased [Unknown]
  - Haematocrit increased [Unknown]
  - Lung infiltration [Unknown]
  - Antineutrophil cytoplasmic antibody positive [Unknown]
  - Ocular hyperaemia [Unknown]
  - Exophthalmos [Unknown]
  - Neutrophil count increased [Unknown]
  - Globulins decreased [Unknown]
  - Eye abscess [Unknown]
  - Rash [Recovering/Resolving]
  - Hyperhidrosis [Unknown]
  - Diplopia [Unknown]
  - Haemoptysis [Unknown]
  - Blood immunoglobulin G decreased [Unknown]
  - Chest X-ray abnormal [Unknown]
  - Blood immunoglobulin A decreased [Unknown]
  - Off label use [Unknown]
  - Monocyte count increased [Unknown]
  - Blood immunoglobulin M decreased [Unknown]
  - Eosinophilia [Unknown]
  - Intentional product use issue [Unknown]
  - Myalgia [Recovering/Resolving]
  - Haemoptysis [Recovering/Resolving]
  - Weight decreased [Unknown]
  - Oral candidiasis [Unknown]
  - Granulocyte count increased [Unknown]
  - Orbital infection [Unknown]
  - Sinusitis [Recovering/Resolving]
  - Cough [Recovering/Resolving]
  - Arthralgia [Unknown]
  - Nodule [Unknown]
  - Nasal congestion [Not Recovered/Not Resolved]
  - White blood cell count increased [Unknown]

NARRATIVE: CASE EVENT DATE: 201502
